FAERS Safety Report 5594396-5 (Version None)
Quarter: 2008Q1

REPORT INFORMATION
  Report Type: 
  Country: None (occurrence: None)
  Receive Date: 20080115
  Receipt Date: 20080115
  Transmission Date: 20080703
  Serious: No
  Sender: FDA-Public Use
  Company Number: None

PATIENT
  Age: 48 Year
  Sex: Female

DRUGS (2)
  1. UREA CREAM   50%    RIVER'S EDGE [Suspect]
     Indication: DRY SKIN
     Dosage: APPLY TO HANDS  2 TO 3 TIMES DAILY  TOP
     Route: 061
     Dates: start: 20071217, end: 20071231
  2. UREA CREAM   50%    RIVER'S EDGE [Suspect]
     Indication: SKIN CHAPPED
     Dosage: APPLY TO HANDS  2 TO 3 TIMES DAILY  TOP
     Route: 061
     Dates: start: 20071217, end: 20071231

REACTIONS (2)
  - PHARMACEUTICAL PRODUCT COMPLAINT [None]
  - SENSORY DISTURBANCE [None]
